FAERS Safety Report 7609404-7 (Version None)
Quarter: 2011Q3

REPORT INFORMATION
  Report Type: 
  Country: None (occurrence: None)
  Receive Date: 20110714
  Receipt Date: 20110711
  Transmission Date: 20111222
  Serious: Yes (Death, Life-Threatening, Hospitalization)
  Sender: FDA-Public Use
  Company Number: PHHY2009JP15628

PATIENT
  Sex: Male
  Weight: 64 kg

DRUGS (1)
  1. GLEEVEC [Suspect]
     Indication: GASTROINTESTINAL STROMAL TUMOUR
     Dosage: 400 MG, DAILY
     Route: 048
     Dates: start: 20090205, end: 20090317

REACTIONS (5)
  - DYSPNOEA [None]
  - SEPSIS [None]
  - PNEUMONIA BACTERIAL [None]
  - INTERSTITIAL LUNG DISEASE [None]
  - DEPENDENCE ON RESPIRATOR [None]
